FAERS Safety Report 10016748 (Version 2)
Quarter: 2014Q1

REPORT INFORMATION
  Report Type: Report from Study
  Country: ZA (occurrence: ZA)
  Receive Date: 20140318
  Receipt Date: 20140322
  Transmission Date: 20141002
  Serious: Yes (Other)
  Sender: FDA-Public Use
  Company Number: PHHY2014ZA030774

PATIENT
  Age: 76 Year
  Sex: Female

DRUGS (4)
  1. ACLASTA [Suspect]
     Indication: OSTEOPOROSIS
     Dosage: 5MG/100ML, ANUALLY
     Route: 042
     Dates: start: 2010
  2. ACLASTA [Suspect]
     Dosage: 5MG/100ML, ANUALLY
     Route: 042
     Dates: start: 2011
  3. ACLASTA [Suspect]
     Dosage: 5MG/100ML, ANUALLY
     Route: 042
     Dates: start: 2012
  4. ACLASTA [Suspect]
     Dosage: 5MG/100ML, ANNUALLY
     Route: 042
     Dates: start: 2013

REACTIONS (8)
  - Compression fracture [Unknown]
  - Osteoporosis [Unknown]
  - Scoliosis [Unknown]
  - Spondylolisthesis [Unknown]
  - Intervertebral disc space narrowing [Unknown]
  - Osteopenia [Unknown]
  - Vertebral wedging [Unknown]
  - Spinal osteoarthritis [Unknown]
